FAERS Safety Report 8072922-4 (Version None)
Quarter: 2012Q1

REPORT INFORMATION
  Report Type: 
  Country: None (occurrence: None)
  Receive Date: 20120126
  Receipt Date: 20120118
  Transmission Date: 20120608
  Serious: Yes (Hospitalization)
  Sender: FDA-Public Use
  Company Number: FR-PFIZER INC-K201100603

PATIENT
  Age: 59 Year
  Sex: Male

DRUGS (15)
  1. RAMIPRIL [Suspect]
     Dosage: 2.5 MG, 2X/DAY
     Route: 065
  2. VITAMIN D [Concomitant]
     Dosage: UNK
  3. ALUMINIUM HYDROXIDE-MAGNESIUM CARBONATE GEL/ALUMINIUM MAGNESIUM SILICA [Concomitant]
     Dosage: UNK
  4. IRBESARTAN [Suspect]
     Dosage: 75 MG, 1X/DAY
  5. ROCALTROL [Concomitant]
     Dosage: UNK
  6. ALLOPURINOL [Concomitant]
     Dosage: UNK
  7. HYDROCHLOROTHIAZIDE [Suspect]
     Dosage: UNK
  8. ATORVASTATIN [Concomitant]
     Dosage: UNK
  9. PANTOPRAZOLE SODIUM [Concomitant]
     Dosage: UNK
  10. TIORFAN [Concomitant]
     Dosage: UNK
  11. SODIUM BICARBONATE [Concomitant]
     Dosage: UNK
  12. PROGRAF [Concomitant]
     Dosage: UNK
  13. DELURSAN [Concomitant]
     Dosage: UNK
  14. MYCOPHENOLATE MOFETIL (CELLCEPT) [Concomitant]
     Dosage: UNK
  15. ASPIRIN [Concomitant]
     Dosage: UNK

REACTIONS (4)
  - CREPITATIONS [None]
  - RENAL FAILURE ACUTE [None]
  - ANURIA [None]
  - DEHYDRATION [None]
